FAERS Safety Report 8401596-5 (Version None)
Quarter: 2012Q2

REPORT INFORMATION
  Report Type: 
  Country: None (occurrence: None)
  Receive Date: 20120601
  Receipt Date: 20120521
  Transmission Date: 20120825
  Serious: No
  Sender: FDA-Public Use
  Company Number: US-JNJFOC-20120518145

PATIENT
  Sex: Male
  Weight: 93.44 kg

DRUGS (4)
  1. FENTANYL-100 [Suspect]
     Indication: PAIN
     Route: 062
     Dates: start: 20100101
  2. FENTANYL-100 [Suspect]
     Indication: PAIN
     Route: 062
     Dates: start: 20100101
  3. PERCOCET [Concomitant]
     Indication: PAIN
     Dosage: 10 MG/325 MG EVERY 8 HOURS
     Route: 048
  4. FENTANYL-100 [Suspect]
     Route: 062

REACTIONS (4)
  - DRUG DISPENSING ERROR [None]
  - PAIN IN EXTREMITY [None]
  - PRODUCT QUALITY ISSUE [None]
  - TREATMENT NONCOMPLIANCE [None]
